FAERS Safety Report 25506783 (Version 1)
Quarter: 2025Q3

REPORT INFORMATION
  Report Type: Other
  Country: IN (occurrence: IN)
  Receive Date: 20250702
  Receipt Date: 20250702
  Transmission Date: 20251021
  Serious: Yes (Hospitalization, Disabling, Other)
  Sender: BRECKENRIDGE PHARMACEUTICAL, INC.
  Company Number: IN-Breckenridge Pharmaceutical, Inc.-2179824

PATIENT
  Age: 96 Year
  Sex: Male

DRUGS (8)
  1. DULOXETINE HYDROCHLORIDE [Suspect]
     Active Substance: DULOXETINE HYDROCHLORIDE
  2. PREGABALIN [Interacting]
     Active Substance: PREGABALIN
  3. TRIHEXYPHENIDYL HYDROCHLORIDE [Concomitant]
     Active Substance: TRIHEXYPHENIDYL HYDROCHLORIDE
  4. RASAGILINE [Concomitant]
     Active Substance: RASAGILINE
  5. DONEPEZIL [Concomitant]
     Active Substance: DONEPEZIL
  6. QUETIAPINE [Interacting]
     Active Substance: QUETIAPINE
  7. MEMANTINE [Interacting]
     Active Substance: MEMANTINE
  8. RIVASTIGMINE [Suspect]
     Active Substance: RIVASTIGMINE

REACTIONS (10)
  - Hyporesponsive to stimuli [Recovered/Resolved]
  - Mouth ulceration [Recovered/Resolved]
  - Gait disturbance [Recovered/Resolved]
  - Tremor [Recovered/Resolved]
  - Neuropsychological symptoms [Recovered/Resolved]
  - Soliloquy [Recovered/Resolved]
  - Insomnia [Recovered/Resolved]
  - Hallucination, visual [Recovered/Resolved]
  - Drug interaction [Recovered/Resolved]
  - Drug interaction [Recovered/Resolved]
